FAERS Safety Report 9827437 (Version 1)
Quarter: 2014Q1

REPORT INFORMATION
  Report Type: Spontaneous
  Country: US (occurrence: US)
  Receive Date: 20140117
  Receipt Date: 20140117
  Transmission Date: 20141002
  Serious: Yes (Hospitalization)
  Sender: FDA-Public Use
  Company Number: US-ASTRAZENECA-2014SE02264

PATIENT
  Sex: Male

DRUGS (1)
  1. PRILOSEC [Suspect]
     Route: 048
     Dates: start: 2012

REACTIONS (3)
  - Hyperchlorhydria [Unknown]
  - Drug hypersensitivity [Unknown]
  - Drug clearance decreased [Unknown]
